FAERS Safety Report 7584460-3 (Version None)
Quarter: 2011Q2

REPORT INFORMATION
  Report Type: 
  Country: None (occurrence: None)
  Receive Date: 20110630
  Receipt Date: 20110623
  Transmission Date: 20111010
  Serious: Yes (Hospitalization)
  Sender: FDA-Public Use
  Company Number: GB-CEPHALON-2011002918

PATIENT
  Sex: Male

DRUGS (3)
  1. BENDAMUSTINE HCL [Suspect]
     Route: 042
     Dates: start: 20110506
  2. THALIDOMIDE [Suspect]
     Route: 048
     Dates: start: 20110506
  3. DEXAMETHASONE [Suspect]
     Route: 048
     Dates: start: 20110506

REACTIONS (1)
  - LUNG INFECTION [None]
